FAERS Safety Report 13498643 (Version 4)
Quarter: 2017Q3

REPORT INFORMATION
  Report Type: Spontaneous
  Country: US (occurrence: US)
  Receive Date: 20170501
  Receipt Date: 20170913
  Transmission Date: 20171127
  Serious: No
  Sender: FDA-Public Use
  Company Number: US-PFIZER INC-2017187669

PATIENT
  Age: 17 Year
  Sex: Male
  Weight: 77 kg

DRUGS (1)
  1. BENEFIX [Suspect]
     Active Substance: COAGULATION FACTOR IX RECOMBINANT HUMAN\ISOPROPYL ALCOHOL
     Dosage: 9500 UNITS, ONCE A DAY OR EVERY OTHER DAY
     Route: 042

REACTIONS (1)
  - Joint injury [Recovered/Resolved]

NARRATIVE: CASE EVENT DATE: 20170422
